FAERS Safety Report 12391813 (Version 1)
Quarter: 2016Q2

REPORT INFORMATION
  Report Type: Other
  Country: AU (occurrence: AU)
  Receive Date: 20160523
  Receipt Date: 20160523
  Transmission Date: 20160815
  Serious: Yes (Death, Hospitalization)
  Sender: FDA-Public Use
  Company Number: AU-JUBILANT GENERICS LIMITED-1052602

PATIENT
  Age: 31 Year
  Sex: Male

DRUGS (1)
  1. QUETIAPINE FUMARATE. [Suspect]
     Active Substance: QUETIAPINE FUMARATE

REACTIONS (5)
  - Respiratory depression [Fatal]
  - Depressed level of consciousness [Unknown]
  - Intentional overdose [Fatal]
  - Cardiac arrest [Fatal]
  - Seizure [Fatal]

NARRATIVE: CASE EVENT DATE: 20160510
